FAERS Safety Report 23015122 (Version 1)
Quarter: 2023Q4

REPORT INFORMATION
  Report Type: Spontaneous
  Country: FR (occurrence: FR)
  Receive Date: 20231002
  Receipt Date: 20231002
  Transmission Date: 20240109
  Serious: Yes (Other)
  Sender: FDA-Public Use
  Company Number: FR-002147023-NVSC2023FR210554

PATIENT
  Sex: Male

DRUGS (1)
  1. TEGRETOL [Suspect]
     Active Substance: CARBAMAZEPINE
     Indication: Epilepsy
     Dosage: 200 MG, QD (MORNING AND EVENING) (SINCE 22 YEARS AGO)
     Route: 065

REACTIONS (10)
  - Renal failure [Unknown]
  - Hepatic failure [Unknown]
  - Cardiac failure [Unknown]
  - Bradycardia [Unknown]
  - Motor dysfunction [Unknown]
  - Ataxia [Unknown]
  - Hypertension [Unknown]
  - Headache [Unknown]
  - Dizziness [Unknown]
  - Nausea [Unknown]
